FAERS Safety Report 7810372-3 (Version None)
Quarter: 2011Q4

REPORT INFORMATION
  Report Type: 
  Country: None (occurrence: None)
  Receive Date: 20111012
  Receipt Date: 20110928
  Transmission Date: 20120403
  Serious: Yes (Other)
  Sender: FDA-Public Use
  Company Number: CA-ROCHE-1000920

PATIENT
  Sex: Female
  Weight: 90.8 kg

DRUGS (7)
  1. METHOTREXATE [Concomitant]
  2. MABTHERA [Suspect]
     Indication: RHEUMATOID ARTHRITIS
     Route: 042
     Dates: start: 20110927
  3. FOLIC ACID [Concomitant]
  4. PREDNISONE TAB [Concomitant]
  5. OXYCONTIN [Concomitant]
     Dosage: OXTCONTIN 10 MG
     Route: 048
  6. TYLENOL-500 [Concomitant]
     Route: 048
  7. ACTONEL [Concomitant]

REACTIONS (5)
  - RESTLESS LEGS SYNDROME [None]
  - CHILLS [None]
  - THROAT IRRITATION [None]
  - HOT FLUSH [None]
  - OROPHARYNGEAL PAIN [None]
